FAERS Safety Report 4638473-1 (Version None)
Quarter: 2005Q2

REPORT INFORMATION
  Report Type: 
  Country: None (occurrence: None)
  Receive Date: 20050418
  Receipt Date: 20041023
  Transmission Date: 20051028
  Serious: Yes (Other)
  Sender: FDA-Public Use
  Company Number: EWC041041157

PATIENT
  Age: 77 Year
  Sex: Female
  Weight: 76 kg

DRUGS (5)
  1. TERIPARATIDE [Suspect]
     Indication: OSTEOPOROSIS
     Dates: start: 20040930, end: 20041022
  2. AMILORIDE W/ HYDROCHLOROTHIAZIDE [Concomitant]
  3. CICLO 3 [Concomitant]
  4. CALCITRIOL [Concomitant]
  5. CALCIUM CARBONATE W/COLECALCIFEROL [Concomitant]

REACTIONS (1)
  - COLORECTAL CANCER [None]
